FAERS Safety Report 4360885-4 (Version None)
Quarter: 2004Q2

REPORT INFORMATION
  Report Type: 
  Country: None (occurrence: None)
  Receive Date: 20040514
  Receipt Date: 20040222
  Transmission Date: 20050107
  Serious: Yes (Hospitalization, Other)
  Sender: FDA-Public Use
  Company Number: KII-2004-0010231

PATIENT
  Age: 46 Year
  Sex: Female

DRUGS (4)
  1. OXYCONTIN TABLETS(OXYCODONE HYDROCHLORIDE) CR TABLET [Suspect]
  2. SSRI [Suspect]
     Indication: DRUG USE FOR UNKNOWN INDICATION
  3. COCAINE (COCAINE) [Suspect]
     Indication: DRUG USE FOR UNKNOWN INDICATION
  4. ETHANOL (ETHANOL) [Suspect]
     Indication: DRUG USE FOR UNKNOWN INDICATION

REACTIONS (10)
  - AGGRESSION [None]
  - AGITATION [None]
  - BELLIGERENCE [None]
  - CHEST PAIN [None]
  - DRUG SCREEN NEGATIVE [None]
  - FALSE NEGATIVE LABORATORY RESULT [None]
  - INTENTIONAL MISUSE [None]
  - OXYGEN SATURATION DECREASED [None]
  - POLYSUBSTANCE ABUSE [None]
  - REFUSAL OF TREATMENT BY PATIENT [None]
